FAERS Safety Report 6215630-4 (Version None)
Quarter: 2009Q2

REPORT INFORMATION
  Report Type: 
  Country: None (occurrence: None)
  Receive Date: 20090605
  Receipt Date: 20090601
  Transmission Date: 20091009
  Serious: Yes (Other)
  Sender: FDA-Public Use
  Company Number: US-TEVA-039038

PATIENT
  Sex: Female

DRUGS (5)
  1. CLARAVIS [Suspect]
     Dosage: 40 MG, QD IN AM
     Route: 048
     Dates: start: 20080904, end: 20081101
  2. CLARAVIS [Suspect]
     Dosage: 20 MG, QD IN PM
     Route: 048
     Dates: start: 20080904, end: 20081101
  3. CLARAVIS [Suspect]
     Dosage: 40 MG, QD IN AM
     Dates: start: 20081101, end: 20081226
  4. CLARAVIS [Suspect]
     Dosage: 20 MG, QD IN PM
     Route: 048
     Dates: start: 20081101, end: 20081226
  5. ORAL CONTRACEPTIVE NOS [Concomitant]

REACTIONS (7)
  - MALAISE [None]
  - NAUSEA [None]
  - SELECTIVE ABORTION [None]
  - SINUS DISORDER [None]
  - SINUSITIS [None]
  - UNINTENDED PREGNANCY [None]
  - VOMITING [None]
